FAERS Safety Report 24547050 (Version 4)
Quarter: 2024Q4

REPORT INFORMATION
  Report Type: Report from Study
  Country: CN (occurrence: CN)
  Receive Date: 20241025
  Receipt Date: 20241204
  Transmission Date: 20250115
  Serious: Yes (Hospitalization)
  Sender: ABBVIE
  Company Number: CN-ABBVIE-5834526

PATIENT
  Age: 14 Year
  Sex: Female
  Weight: 68 kg

DRUGS (23)
  1. RINVOQ [Suspect]
     Active Substance: UPADACITINIB
     Indication: Dermatitis atopic
     Route: 048
     Dates: start: 202302, end: 20240131
  2. RINVOQ [Suspect]
     Active Substance: UPADACITINIB
     Indication: Dermatitis atopic
     Route: 048
     Dates: start: 20240306, end: 20240329
  3. RINVOQ [Suspect]
     Active Substance: UPADACITINIB
     Indication: Dermatitis atopic
     Route: 048
     Dates: start: 20240406, end: 20241012
  4. RINVOQ [Suspect]
     Active Substance: UPADACITINIB
     Indication: Dermatitis atopic
     Route: 048
     Dates: start: 20240208, end: 20240210
  5. RINVOQ [Suspect]
     Active Substance: UPADACITINIB
     Indication: Dermatitis atopic
     Route: 048
     Dates: start: 20240201, end: 20240207
  6. RINVOQ [Suspect]
     Active Substance: UPADACITINIB
     Indication: Dermatitis atopic
     Route: 048
     Dates: start: 20240330, end: 20240331
  7. RINVOQ [Suspect]
     Active Substance: UPADACITINIB
     Indication: Dermatitis atopic
     Dosage: FORM STRENGTH 30 MILLIGRAM
     Route: 048
     Dates: start: 20240211, end: 20240304
  8. RINVOQ [Suspect]
     Active Substance: UPADACITINIB
     Indication: Dermatitis atopic
     Route: 048
     Dates: start: 20240401, end: 20240403
  9. RINVOQ [Suspect]
     Active Substance: UPADACITINIB
     Indication: Dermatitis atopic
     Route: 048
     Dates: start: 20240212, end: 20240305
  10. RINVOQ [Suspect]
     Active Substance: UPADACITINIB
     Indication: Dermatitis atopic
     Dosage: 15 MILLIGRAM
     Route: 048
     Dates: start: 20241021, end: 20241025
  11. RINVOQ [Suspect]
     Active Substance: UPADACITINIB
     Indication: Dermatitis atopic
     Route: 048
     Dates: start: 20241013, end: 20241020
  12. MOMETASONE FUROATE [Concomitant]
     Active Substance: MOMETASONE FUROATE
     Indication: Dermatitis atopic
     Route: 061
     Dates: start: 20240330, end: 20240401
  13. LEVOCETIRIZINE HYDROCHLORIDE [Concomitant]
     Active Substance: LEVOCETIRIZINE HYDROCHLORIDE
     Indication: Dermatitis atopic
     Route: 048
     Dates: start: 20230708
  14. LEVOCETIRIZINE HYDROCHLORIDE [Concomitant]
     Active Substance: LEVOCETIRIZINE HYDROCHLORIDE
     Indication: Dermatitis atopic
     Route: 048
     Dates: start: 20241007
  15. FUSIDIC ACID [Concomitant]
     Active Substance: FUSIDIC ACID
     Indication: Dermatitis atopic
     Dosage: DOSE: 0.2 GRAM
     Route: 061
     Dates: start: 20240201, end: 20240205
  16. CAMPHOR [Concomitant]
     Active Substance: CAMPHOR
     Indication: Dermatitis atopic
     Dosage: COMPOUND CAMPHOR CREAM, DOSE: 0.1 GRAM,0.5 DAYS
     Route: 061
     Dates: start: 20230527, end: 202306
  17. FLUTICASONE PROPIONATE [Concomitant]
     Active Substance: FLUTICASONE PROPIONATE
     Indication: Dermatitis atopic
     Dosage: DOSE: 0.2 GRAM
     Route: 061
     Dates: start: 20230527, end: 202306
  18. FEXOFENADINE HYDROCHLORIDE [Concomitant]
     Active Substance: FEXOFENADINE HYDROCHLORIDE
     Indication: Dermatitis atopic
     Route: 048
     Dates: start: 20230507, end: 20230610
  19. DESONIDE [Concomitant]
     Active Substance: DESONIDE
     Indication: Dermatitis atopic
     Dosage: FREQUENCY TEXT: ONCE A MONTH
     Route: 061
     Dates: start: 20240313, end: 20240314
  20. DESONIDE [Concomitant]
     Active Substance: DESONIDE
     Indication: Dermatitis atopic
     Dosage: FREQUENCY TEXT: ONCE A MONTH
     Route: 061
     Dates: start: 202302, end: 202402
  21. CRISABOROLE [Concomitant]
     Active Substance: CRISABOROLE
     Indication: Dermatitis atopic
     Dosage: 0.2 GRAM
     Route: 061
     Dates: start: 20241007
  22. CRISABOROLE [Concomitant]
     Active Substance: CRISABOROLE
     Indication: Dermatitis atopic
     Route: 061
     Dates: start: 20240316, end: 20240404
  23. CRISABOROLE [Concomitant]
     Active Substance: CRISABOROLE
     Indication: Dermatitis atopic
     Route: 061
     Dates: start: 20230809

REACTIONS (5)
  - Dermatitis atopic [Recovered/Resolved]
  - Upper respiratory tract infection [Recovered/Resolved]
  - Gastroenteritis [Recovered/Resolved]
  - Hyperuricaemia [Unknown]
  - Menstruation irregular [Recovered/Resolved]

NARRATIVE: CASE EVENT DATE: 20240401
